FAERS Safety Report 5679410-0 (Version None)
Quarter: 2008Q1

REPORT INFORMATION
  Report Type: 
  Country: None (occurrence: None)
  Receive Date: 20080325
  Receipt Date: 20080314
  Transmission Date: 20080703
  Serious: Yes (Hospitalization)
  Sender: FDA-Public Use
  Company Number: US-PFIZER INC-2006084928

PATIENT
  Sex: Male
  Weight: 65.7 kg

DRUGS (2)
  1. SU-011,248 [Suspect]
     Indication: PROSTATE CANCER
     Route: 048
     Dates: start: 20060628, end: 20060706
  2. SU-011,248 [Suspect]
     Route: 048
     Dates: start: 20060709, end: 20060710

REACTIONS (1)
  - PAROTITIS [None]
